FAERS Safety Report 25933625 (Version 2)
Quarter: 2025Q4

REPORT INFORMATION
  Report Type: Report from Study
  Country: US (occurrence: US)
  Receive Date: 20251017
  Receipt Date: 20251031
  Transmission Date: 20260117
  Serious: Yes (Hospitalization)
  Sender: ALEXION PHARMACEUTICALS
  Company Number: US-AstraZeneca-CH-00971107A

PATIENT
  Sex: Female
  Weight: 108.39 kg

DRUGS (1)
  1. CAPIVASERTIB [Suspect]
     Active Substance: CAPIVASERTIB
     Indication: Breast cancer female
     Dosage: 400 MILLIGRAM, BID
     Dates: start: 20250312

REACTIONS (4)
  - Hypertension [Recovered/Resolved]
  - Blood sodium decreased [Recovered/Resolved]
  - Dysphonia [Unknown]
  - Depression [Unknown]
